FAERS Safety Report 7954251-X (Version None)
Quarter: 2011Q4

REPORT INFORMATION
  Report Type: 
  Country: None (occurrence: None)
  Receive Date: 20111202
  Receipt Date: 20111128
  Transmission Date: 20120403
  Serious: Yes (Hospitalization)
  Sender: FDA-Public Use
  Company Number: AT-AMGEN-AUTCT2011052652

PATIENT
  Sex: Female

DRUGS (4)
  1. DENOSUMAB [Suspect]
     Indication: OSTEOPOROSIS POSTMENOPAUSAL
  2. MAXI CAL [Concomitant]
     Dosage: 1000 MG, QD
     Route: 048
     Dates: start: 20010101
  3. DIOVAN HCT [Concomitant]
     Dosage: UNK UNK, QD
     Route: 048
     Dates: start: 20070601
  4. EZETIMIBE [Concomitant]
     Dosage: UNK UNK, QD
     Route: 048
     Dates: start: 20081113

REACTIONS (1)
  - CEREBROVASCULAR ACCIDENT [None]
